FAERS Safety Report 13645565 (Version 4)
Quarter: 2017Q2

REPORT INFORMATION
  Report Type: Spontaneous
  Country: DE (occurrence: DE)
  Receive Date: 20170613
  Receipt Date: 20170621
  Transmission Date: 20170830
  Serious: Yes (Other)
  Sender: FDA-Public Use
  Company Number: ALCN2017DE003832

PATIENT
  Sex: Female

DRUGS (1)
  1. ISOPTO-MAXITROL [Suspect]
     Active Substance: DEXAMETHASONE\NEOMYCIN SULFATE\POLYMYXIN B SULFATE
     Indication: PRODUCT USED FOR UNKNOWN INDICATION
     Dosage: (ONCE IN THE MORNING AND ONCE IN THE EVENING)
     Route: 047

REACTIONS (1)
  - Blood pressure increased [Unknown]
